FAERS Safety Report 11682927 (Version 1)
Quarter: 2015Q4

REPORT INFORMATION
  Report Type: Spontaneous
  Country: FR (occurrence: FR)
  Receive Date: 20151029
  Receipt Date: 20151029
  Transmission Date: 20160304
  Serious: Yes (Hospitalization)
  Sender: FDA-Public Use
  Company Number: FR-INDIVIOR-INDV-084700-2015

PATIENT
  Age: 37 Year
  Sex: Male

DRUGS (8)
  1. ALCOHOL. [Suspect]
     Active Substance: ALCOHOL
     Indication: PRODUCT USED FOR UNKNOWN INDICATION
     Dosage: 19 UNITS PER DAY
     Route: 065
  2. SUBUTEX [Suspect]
     Active Substance: BUPRENORPHINE HYDROCHLORIDE
     Indication: PRODUCT USED FOR UNKNOWN INDICATION
     Dosage: 14 MG;DAILY (IN TWO INTAKES),8 MG IN THE MORNING AND 6 MG IN THE EVENING (SNIFF).
     Route: 045
  3. SUBUTEX [Suspect]
     Active Substance: BUPRENORPHINE HYDROCHLORIDE
     Dosage: UNK
     Route: 045
  4. CANNABIS [Suspect]
     Active Substance: CANNABIS SATIVA SUBSP. INDICA TOP
     Indication: PRODUCT USED FOR UNKNOWN INDICATION
     Dosage: UNK
     Route: 065
  5. SUBUTEX [Suspect]
     Active Substance: BUPRENORPHINE HYDROCHLORIDE
     Dosage: UNK
     Route: 051
  6. ALCOHOL. [Suspect]
     Active Substance: ALCOHOL
     Dosage: 19 TO 80 UNITS DAILY
     Route: 065
  7. COCAINE [Suspect]
     Active Substance: COCAINE
     Indication: PRODUCT USED FOR UNKNOWN INDICATION
     Dosage: UNK
     Route: 065
  8. ECSTASY [Suspect]
     Active Substance: METHYLENEDIOXYMETHAMPHETAMINE
     Indication: PRODUCT USED FOR UNKNOWN INDICATION
     Dosage: UNK
     Route: 065

REACTIONS (16)
  - Drug dependence [Unknown]
  - Renal impairment [Unknown]
  - Anaemia macrocytic [Unknown]
  - Pneumonia [Unknown]
  - Drug abuse [Unknown]
  - Cardiac failure [Recovering/Resolving]
  - Delirium tremens [Unknown]
  - Oedema peripheral [Unknown]
  - Alcohol abuse [Unknown]
  - Septic shock [Unknown]
  - Substance abuse [Unknown]
  - Thrombocytosis [Unknown]
  - Inappropriate schedule of drug administration [Unknown]
  - Hepatitis alcoholic [Unknown]
  - Malnutrition [Unknown]
  - Intentional product use issue [Unknown]
